FAERS Safety Report 6217976-2 (Version None)
Quarter: 2009Q2

REPORT INFORMATION
  Report Type: 
  Country: None (occurrence: None)
  Receive Date: 20090608
  Receipt Date: 20090602
  Transmission Date: 20091009
  Serious: Yes (Hospitalization)
  Sender: FDA-Public Use
  Company Number: GB-JNJFOC-20090601351

PATIENT
  Age: 26 Year
  Sex: Male

DRUGS (6)
  1. HALOPERIDOL [Suspect]
     Route: 048
  2. HALOPERIDOL [Suspect]
     Indication: SCHIZOPHRENIA
     Route: 048
  3. RISPERIDONE [Suspect]
     Indication: SCHIZOPHRENIA
     Route: 048
  4. CITALOPRAM HYDROBROMIDE [Concomitant]
     Indication: ANTIDEPRESSANT THERAPY
     Route: 048
  5. PROCYCLIDINE HYDROCHLORIDE 2MG TAB [Concomitant]
     Route: 048
  6. ZOPICLONE [Concomitant]
     Indication: INSOMNIA
     Route: 048

REACTIONS (1)
  - NEUTROPENIA [None]
